FAERS Safety Report 8789958 (Version 2)
Quarter: 2012Q4

REPORT INFORMATION
  Report Type: 
  Country: US (occurrence: US)
  Receive Date: 20120917
  Receipt Date: 20121107
  Transmission Date: 20130627
  Serious: Yes (Disabling, Other)
  Sender: FDA-Public Use
  Company Number: US-JNJFOC-20120810652

PATIENT
  Age: 47 None
  Sex: Female
  Weight: 144 kg

DRUGS (13)
  1. REMICADE [Suspect]
     Indication: CROHN^S DISEASE
     Route: 042
     Dates: start: 20120622
  2. REMICADE [Suspect]
     Indication: CROHN^S DISEASE
     Route: 042
     Dates: start: 20120706
  3. REMICADE [Suspect]
     Indication: CROHN^S DISEASE
     Route: 042
     Dates: start: 20120816
  4. REMICADE [Suspect]
     Indication: GASTROINTESTINAL DISORDER
     Route: 042
     Dates: start: 20120706
  5. REMICADE [Suspect]
     Indication: GASTROINTESTINAL DISORDER
     Route: 042
     Dates: start: 20120622
  6. REMICADE [Suspect]
     Indication: GASTROINTESTINAL DISORDER
     Route: 042
     Dates: start: 20120816
  7. LOPERAMIDE [Concomitant]
     Indication: CROHN^S DISEASE
     Route: 065
     Dates: start: 20101020
  8. AZATHIOPRINE [Concomitant]
     Route: 065
  9. NEXIUM [Concomitant]
     Indication: GASTROOESOPHAGEAL REFLUX DISEASE
     Route: 065
     Dates: start: 20090625
  10. PENTASA [Concomitant]
     Indication: CROHN^S DISEASE
     Route: 065
     Dates: start: 2009
  11. FOLIC ACID [Concomitant]
     Indication: ANAEMIA
     Route: 065
  12. AZULFIDINE [Concomitant]
     Indication: CROHN^S DISEASE
     Route: 065
     Dates: start: 20090625
  13. CALCIUM [Concomitant]
     Indication: GASTROOESOPHAGEAL REFLUX DISEASE
     Route: 065

REACTIONS (2)
  - Migraine [Recovered/Resolved]
  - Furuncle [Recovered/Resolved]
